FAERS Safety Report 9534765 (Version 1)
Quarter: 2013Q3

REPORT INFORMATION
  Report Type: Spontaneous
  Country: US (occurrence: US)
  Receive Date: 20130918
  Receipt Date: 20130918
  Transmission Date: 20140515
  Serious: Yes (Other)
  Sender: FDA-Public Use
  Company Number: US-NAPPMUNDI-USA-2011-0080341

PATIENT
  Age: 59 Year
  Sex: Male

DRUGS (4)
  1. BUTRANS [Suspect]
     Indication: PAIN
     Dosage: 10 MCG, Q1H
     Route: 062
  2. XANAX [Concomitant]
     Indication: ANXIETY
  3. WELLBUTRIN [Concomitant]
     Indication: ANTIDEPRESSANT THERAPY
  4. PROVIGIL [Concomitant]
     Dosage: 200 MG, UNK

REACTIONS (1)
  - Hallucination, visual [Not Recovered/Not Resolved]
